FAERS Safety Report 26122097 (Version 1)
Quarter: 2025Q4

REPORT INFORMATION
  Report Type: Spontaneous
  Country: CN (occurrence: CN)
  Receive Date: 20251204
  Receipt Date: 20251204
  Transmission Date: 20260119
  Serious: Yes (Life-Threatening, Hospitalization, Other)
  Sender: BAYER HEALTHCARE PHARMACEUTICALS INC.
  Company Number: CN-BAYER-2025A159170

PATIENT
  Age: 37 Year
  Sex: Female
  Weight: 45 kg

DRUGS (3)
  1. ULTRAVIST [Suspect]
     Active Substance: IOPROMIDE
     Indication: Computerised tomogram thorax
     Dosage: 85 ML, ONCE
     Route: 042
     Dates: start: 20251202, end: 20251202
  2. ULTRAVIST [Suspect]
     Active Substance: IOPROMIDE
     Indication: Computerised tomogram abdomen
  3. ULTRAVIST [Suspect]
     Active Substance: IOPROMIDE
     Indication: Ovarian cancer

REACTIONS (9)
  - Anaphylactic shock [Recovering/Resolving]
  - Hypoaesthesia oral [None]
  - Asthenia [None]
  - Blood pressure decreased [Not Recovered/Not Resolved]
  - Dizziness [None]
  - Headache [Recovering/Resolving]
  - Nausea [None]
  - Vomiting [Recovered/Resolved]
  - Blood potassium decreased [None]

NARRATIVE: CASE EVENT DATE: 20251202
